FAERS Safety Report 18644063 (Version 1)
Quarter: 2020Q4

REPORT INFORMATION
  Report Type: Spontaneous
  Country: DE (occurrence: DE)
  Receive Date: 20201221
  Receipt Date: 20201221
  Transmission Date: 20210114
  Serious: Yes (Other)
  Sender: FDA-Public Use
  Company Number: DE-ASTRAZENECA-2016SE64914

PATIENT
  Sex: Male
  Weight: 87 kg

DRUGS (13)
  1. FORXIGA [Suspect]
     Active Substance: DAPAGLIFLOZIN
     Indication: TYPE 2 DIABETES MELLITUS
     Route: 048
  2. BISOPROLOL [Concomitant]
     Active Substance: BISOPROLOL
     Dosage: 10 1A PHARMA,1 DF DAILY
  3. HCT HEXAL [Concomitant]
     Active Substance: HYDROCHLOROTHIAZIDE
  4. PANTOPRAZOL MIC LAB [Concomitant]
  5. NOVAMINSULFON LICHTEN [Concomitant]
  6. IBUPROFEN AL [Concomitant]
     Active Substance: IBUPROFEN
  7. NATRILIX [Concomitant]
     Active Substance: INDAPAMIDE
  8. FORXIGA [Suspect]
     Active Substance: DAPAGLIFLOZIN
     Indication: TYPE 2 DIABETES MELLITUS
     Route: 048
     Dates: start: 20160421
  9. ASPIRIN. [Concomitant]
     Active Substance: ASPIRIN
  10. SPIRONOLACTON DURA [Concomitant]
     Active Substance: SPIRONOLACTONE
  11. TAMSULOSIN ARISTO [Concomitant]
  12. PRAVASTATIN CT [Concomitant]
  13. CANDESARTAN BIOMO [Concomitant]

REACTIONS (3)
  - Urinary tract infection [Unknown]
  - Fungal balanitis [Unknown]
  - Phimosis [Not Recovered/Not Resolved]

NARRATIVE: CASE EVENT DATE: 20160421
